FAERS Safety Report 24450313 (Version 2)
Quarter: 2024Q4

REPORT INFORMATION
  Report Type: Spontaneous
  Country: BE (occurrence: BE)
  Receive Date: 20241017
  Receipt Date: 20241223
  Transmission Date: 20250115
  Serious: Yes (Other)
  Sender: NOVARTIS
  Company Number: BE-002147023-NVSC2024BE200023

PATIENT
  Age: 11 Year
  Sex: Male

DRUGS (1)
  1. ILARIS [Suspect]
     Active Substance: CANAKINUMAB
     Indication: Still^s disease
     Dosage: 150 MG, Q4W (DOWN-TITRATED RECENTLY TO Q5W)
     Route: 065
     Dates: start: 202207

REACTIONS (1)
  - Hepatitis [Unknown]
